FAERS Safety Report 12232506 (Version 1)
Quarter: 2016Q2

REPORT INFORMATION
  Report Type: Spontaneous
  Country: US (occurrence: US)
  Receive Date: 20160401
  Receipt Date: 20160401
  Transmission Date: 20160815
  Serious: Yes (Other)
  Sender: FDA-Public Use
  Company Number: US-B.I. PHARMACEUTICALS,INC./RIDGEFIELD-2016-BI-18494BP

PATIENT
  Sex: Female

DRUGS (1)
  1. DIMETHICONE. [Suspect]
     Active Substance: DIMETHICONE
     Indication: FLATULENCE
     Route: 048

REACTIONS (1)
  - Thyroid cancer [Unknown]
